FAERS Safety Report 17066131 (Version 1)
Quarter: 2019Q4

REPORT INFORMATION
  Report Type: Spontaneous
  Country: CZ (occurrence: CZ)
  Receive Date: 20191122
  Receipt Date: 20191122
  Transmission Date: 20200122
  Serious: Yes (Other)
  Sender: FDA-Public Use
  Company Number: CZ-MYLANLABS-2019M1112642

PATIENT
  Sex: Male

DRUGS (4)
  1. BICALUTAMIDE. [Suspect]
     Active Substance: BICALUTAMIDE
     Indication: CANCER HORMONAL THERAPY
     Dosage: 50 MG, QD
     Route: 065
     Dates: end: 201401
  2. BICALUTAMIDE. [Suspect]
     Active Substance: BICALUTAMIDE
     Indication: PROSTATE CANCER
     Dosage: UNK
     Route: 065
  3. LEUPRORELIN [Suspect]
     Active Substance: LEUPROLIDE ACETATE
     Indication: PROSTATE CANCER
     Dosage: UNK
     Route: 065
     Dates: end: 201401
  4. LEUPRORELIN [Suspect]
     Active Substance: LEUPROLIDE ACETATE
     Indication: CANCER HORMONAL THERAPY
     Dosage: UNK
     Route: 065

REACTIONS (2)
  - Prostatic specific antigen increased [Unknown]
  - Prostate cancer [Unknown]

NARRATIVE: CASE EVENT DATE: 201401
